FAERS Safety Report 17850419 (Version 1)
Quarter: 2020Q2

REPORT INFORMATION
  Report Type: Spontaneous
  Country: CA (occurrence: CA)
  Receive Date: 20200602
  Receipt Date: 20200602
  Transmission Date: 20200714
  Serious: Yes (Other)
  Sender: FDA-Public Use
  Company Number: CA-PFIZER INC-2020212823

PATIENT
  Sex: Female
  Weight: 86 kg

DRUGS (7)
  1. METHOTREXATE SODIUM. [Suspect]
     Active Substance: METHOTREXATE SODIUM
     Dosage: 25 MG, WEEKLY
     Route: 058
  2. TOVIAZ [Suspect]
     Active Substance: FESOTERODINE FUMARATE
     Dosage: 8 MG, 1X/DAY
     Route: 048
  3. ZOPICLONE [Suspect]
     Active Substance: ZOPICLONE
     Dosage: 7.5 MG
     Route: 048
  4. SULFASALAZINE. [Suspect]
     Active Substance: SULFASALAZINE
     Dosage: UNK
  5. METFORMIN [Suspect]
     Active Substance: METFORMIN HYDROCHLORIDE
     Dosage: 500 MG
     Route: 048
  6. COSENTYX [Suspect]
     Active Substance: SECUKINUMAB
     Dosage: 1 DF, MONTHLY
     Route: 058
  7. MYRBETRIQ [Suspect]
     Active Substance: MIRABEGRON
     Dosage: 50 MG, 1X/DAY
     Route: 048

REACTIONS (9)
  - Liver function test increased [Unknown]
  - Endometriosis [Unknown]
  - Enthesopathy [Unknown]
  - Psoriatic arthropathy [Unknown]
  - Rash [Unknown]
  - Condition aggravated [Unknown]
  - Nausea [Unknown]
  - Hypersensitivity [Unknown]
  - Tenosynovitis [Unknown]
